FAERS Safety Report 14299110 (Version 2)
Quarter: 2018Q1

REPORT INFORMATION
  Report Type: Spontaneous
  Country: US (occurrence: US)
  Receive Date: 20171218
  Receipt Date: 20180129
  Transmission Date: 20180509
  Serious: Yes (Other)
  Sender: FDA-Public Use
  Company Number: US-DSJP-DSU-2017-143468

PATIENT

DRUGS (2)
  1. BENICAR HCT [Suspect]
     Active Substance: HYDROCHLOROTHIAZIDE\OLMESARTAN MEDOXOMIL
     Dosage: 40-25 MG , UNK
  2. BENICAR HCT [Suspect]
     Active Substance: HYDROCHLOROTHIAZIDE\OLMESARTAN MEDOXOMIL
     Indication: HYPERTENSION
     Dosage: 40/25MG HALF TABLET, QD
     Route: 048
     Dates: start: 20150507

REACTIONS (5)
  - Drug administration error [Unknown]
  - Diarrhoea haemorrhagic [Unknown]
  - Diverticulitis [Not Recovered/Not Resolved]
  - Gastrooesophageal reflux disease [Unknown]
  - Colitis [Unknown]

NARRATIVE: CASE EVENT DATE: 20150507
